FAERS Safety Report 9205960 (Version 3)
Quarter: 2013Q2

REPORT INFORMATION
  Report Type: Report from Study
  Country: US (occurrence: US)
  Receive Date: 20130403
  Receipt Date: 20130425
  Transmission Date: 20140414
  Serious: Yes (Hospitalization)
  Sender: FDA-Public Use
  Company Number: US-JNJFOC-20130316790

PATIENT
  Age: 17 Year
  Sex: Male
  Weight: 82 kg

DRUGS (23)
  1. REMICADE [Suspect]
     Indication: INFLAMMATORY BOWEL DISEASE
     Route: 042
     Dates: start: 20111030, end: 20111201
  2. DILAUDID [Concomitant]
     Indication: PAIN
     Route: 042
     Dates: start: 20130301
  3. COLACE [Concomitant]
     Route: 065
  4. DIAZEPAM [Concomitant]
     Route: 065
  5. VICODIN [Concomitant]
     Route: 065
  6. VSL3 [Concomitant]
     Route: 065
  7. ZOFRAN [Concomitant]
     Route: 065
  8. GABAPENTIN [Concomitant]
     Route: 065
  9. TYLENOL [Concomitant]
     Route: 065
  10. TIZANIDINE [Concomitant]
     Route: 065
  11. MORPHINE [Concomitant]
     Route: 065
  12. IMODIUM [Concomitant]
     Route: 065
  13. OXYCODONE [Concomitant]
     Route: 065
  14. XIFAXAN [Concomitant]
     Route: 065
  15. PROBIOTICS [Concomitant]
     Route: 065
  16. ATIVAN [Concomitant]
     Route: 065
  17. CIPROFLOXACIN [Concomitant]
     Route: 065
  18. ZOFRAN [Concomitant]
     Route: 065
  19. ANTIBIOTICS NOS [Concomitant]
     Indication: INFLAMMATORY BOWEL DISEASE
     Route: 065
  20. OMEPRAZOLE [Concomitant]
     Indication: INFLAMMATORY BOWEL DISEASE
     Route: 065
  21. TYLENOL WITH CODEINE [Concomitant]
     Indication: INFLAMMATORY BOWEL DISEASE
     Route: 065
  22. OSTEOFLEX [Concomitant]
     Route: 065
  23. MULTIVITAMINS [Concomitant]
     Route: 065

REACTIONS (3)
  - Major depression [Recovered/Resolved]
  - Overdose [Recovered/Resolved]
  - Pain [Recovered/Resolved]
